FAERS Safety Report 8088298-2 (Version None)
Quarter: 2012Q1

REPORT INFORMATION
  Report Type: 
  Country: None (occurrence: None)
  Receive Date: 20120128
  Receipt Date: 20110422
  Transmission Date: 20120608
  Serious: No
  Sender: FDA-Public Use
  Company Number: US-ABBOTT-11P-163-0721265-00

PATIENT
  Age: 28 Year
  Sex: Male

DRUGS (3)
  1. FINASTERIDE [Concomitant]
     Indication: ALOPECIA
  2. HUMIRA [Suspect]
     Indication: CROHN'S DISEASE
     Dates: start: 20100601
  3. MULTI-VITAMIN [Concomitant]
     Indication: PRODUCT USED FOR UNKNOWN INDICATION

REACTIONS (6)
  - INJECTION SITE ERYTHEMA [None]
  - PARAESTHESIA [None]
  - INJECTION SITE SWELLING [None]
  - ORAL HERPES [None]
  - INJECTION SITE WARMTH [None]
  - PRURITUS [None]
